FAERS Safety Report 11291771 (Version 1)
Quarter: 2015Q3

REPORT INFORMATION
  Report Type: Spontaneous
  Country: US (occurrence: US)
  Receive Date: 20150722
  Receipt Date: 20150722
  Transmission Date: 20151125
  Serious: No
  Sender: FDA-Public Use
  Company Number: US-ASTRAZENECA-2015SE68694

PATIENT
  Sex: Female
  Weight: 85.7 kg

DRUGS (7)
  1. VYTORIN [Concomitant]
     Active Substance: EZETIMIBE\SIMVASTATIN
  2. GLIPIZIDE. [Concomitant]
     Active Substance: GLIPIZIDE
  3. OMPERAZOLE [Concomitant]
     Active Substance: OMEPRAZOLE
  4. TOPROL XL [Concomitant]
     Active Substance: METOPROLOL SUCCINATE
  5. LOSARTAN-HCTZ [Concomitant]
     Active Substance: HYDROCHLOROTHIAZIDE\LOSARTAN
  6. KOMBIGLYZE XR [Suspect]
     Active Substance: METFORMIN HYDROCHLORIDE\SAXAGLIPTIN HYDROCHLORIDE
     Indication: TYPE 2 DIABETES MELLITUS
     Dosage: 2.5/1000 MG TWO TIMES A DAY
     Route: 048
  7. BABY ASPIRIN [Concomitant]
     Active Substance: ASPIRIN

REACTIONS (3)
  - Drug ineffective [Unknown]
  - Medication residue present [Unknown]
  - Intentional product misuse [Unknown]
